FAERS Safety Report 9203534 (Version 1)
Quarter: 2013Q2

REPORT INFORMATION
  Report Type: Spontaneous
  Country: US (occurrence: US)
  Receive Date: 20130402
  Receipt Date: 20130402
  Transmission Date: 20140414
  Serious: No
  Sender: FDA-Public Use
  Company Number: US-PFIZER INC-2013102034

PATIENT
  Sex: Female

DRUGS (2)
  1. LYRICA [Suspect]
     Indication: PAIN
     Dosage: 50 MG, DAILY
  2. LYRICA [Suspect]
     Dosage: 150 MG, 3X/DAY

REACTIONS (2)
  - Sensory loss [Unknown]
  - Pain [Unknown]
